APPROVED DRUG PRODUCT: NORETHINDRONE AND ETHINYL ESTRADIOL
Active Ingredient: ETHINYL ESTRADIOL; NORETHINDRONE
Strength: 0.035MG;1MG
Dosage Form/Route: TABLET;ORAL-28
Application: A206864 | Product #001 | TE Code: AB
Applicant: NAARI PTE LTD
Approved: Apr 28, 2017 | RLD: No | RS: No | Type: RX